FAERS Safety Report 6507290-X (Version None)
Quarter: 2009Q4

REPORT INFORMATION
  Report Type: 
  Country: None (occurrence: None)
  Receive Date: 20091221
  Receipt Date: 20091216
  Transmission Date: 20100525
  Serious: Yes (Life-Threatening, Hospitalization)
  Sender: FDA-Public Use
  Company Number: JP-ELI_LILLY_AND_COMPANY-JP200912001798

PATIENT
  Sex: Male
  Weight: 59 kg

DRUGS (7)
  1. PRASUGREL HYDROCHLORIDE [Suspect]
     Indication: CORONARY ARTERY DISEASE
     Dosage: 20 MG, DAILY (1/D)
     Route: 048
     Dates: start: 20091124, end: 20091124
  2. PRASUGREL HYDROCHLORIDE [Suspect]
     Dosage: 5 MG, DAILY (1/D)
     Route: 048
     Dates: start: 20091125
  3. ASPIRIN [Concomitant]
     Dosage: 1 D/F, DAILY (1/D)
     Route: 048
     Dates: start: 20090801
  4. FRANDOL [Concomitant]
     Indication: ANGINA PECTORIS
     Dosage: 40 MEQ, EACH EVENING
     Route: 048
     Dates: start: 20090917
  5. NORVASC [Concomitant]
     Indication: HYPERTENSION
     Dosage: 2 D/F, DAILY (1/D)
     Route: 048
     Dates: start: 20010101, end: 20091204
  6. FLUITRAN [Concomitant]
     Indication: HYPERTENSION
     Dosage: 1 D/F, EACH MORNING
     Route: 048
     Dates: start: 20091124, end: 20091204
  7. NU-LOTAN [Concomitant]
     Indication: HYPERTENSION
     Dosage: 1 D/F, EACH MORNING
     Route: 048
     Dates: start: 20010101

REACTIONS (1)
  - ACUTE MYOCARDIAL INFARCTION [None]
